FAERS Safety Report 10277722 (Version 4)
Quarter: 2014Q3

REPORT INFORMATION
  Report Type: Spontaneous
  Country: AU (occurrence: AU)
  Receive Date: 20140704
  Receipt Date: 20140814
  Transmission Date: 20150326
  Serious: Yes (Other)
  Sender: FDA-Public Use
  Company Number: AU-GE HEALTHCARE MEDICAL DIAGNOSTICS-OMPQ-PR-1406S-0683

PATIENT
  Age: 30 Year
  Sex: Female

DRUGS (3)
  1. KEFLEX [Concomitant]
     Active Substance: CEPHALEXIN
     Indication: ABDOMINAL PAIN
  2. OMNIPAQUE [Suspect]
     Active Substance: IOHEXOL
     Indication: OROPHARYNGEAL PAIN
     Route: 042
     Dates: start: 20140624, end: 20140624
  3. OMNIPAQUE [Suspect]
     Active Substance: IOHEXOL
     Indication: DIAGNOSTIC PROCEDURE

REACTIONS (4)
  - Headache [Recovered/Resolved]
  - Throat irritation [Recovered/Resolved]
  - Eye disorder [Recovered/Resolved]
  - Feeling hot [Recovered/Resolved]

NARRATIVE: CASE EVENT DATE: 20140624
